FAERS Safety Report 6667306-7 (Version None)
Quarter: 2010Q2

REPORT INFORMATION
  Report Type: 
  Country: None (occurrence: None)
  Receive Date: 20100401
  Receipt Date: 20100401
  Transmission Date: 20101027
  Serious: Yes (Other)
  Sender: FDA-Public Use
  Company Number: None

PATIENT
  Sex: Female

DRUGS (1)
  1. GEMFIBROZIL [Suspect]
     Indication: CARDIAC DISORDER
     Dosage: ONE TAB TWICE DAILY PO
     Route: 048
     Dates: start: 20100318, end: 20100323

REACTIONS (7)
  - ABDOMINAL PAIN [None]
  - ASTHENIA [None]
  - CONDITION AGGRAVATED [None]
  - MUSCLE SPASMS [None]
  - OEDEMA [None]
  - URINARY RETENTION [None]
  - VISION BLURRED [None]
